FAERS Safety Report 4813555-X (Version None)
Quarter: 2005Q4

REPORT INFORMATION
  Report Type: 
  Country: None (occurrence: None)
  Receive Date: 20051028
  Receipt Date: 20050223
  Transmission Date: 20060501
  Serious: No
  Sender: FDA-Public Use
  Company Number: US-GLAXOSMITHKLINE-A0546988A

PATIENT
  Age: 54 Year
  Sex: Female

DRUGS (3)
  1. ADVAIR DISKUS 100/50 [Suspect]
     Indication: BRONCHITIS
     Route: 055
  2. BIAXIN [Concomitant]
     Indication: BRONCHITIS
     Route: 065
  3. ALBUTEROL [Concomitant]
     Indication: BRONCHITIS
     Route: 055

REACTIONS (2)
  - PRURITUS [None]
  - RASH MACULAR [None]
